FAERS Safety Report 4925868-1 (Version None)
Quarter: 2006Q1

REPORT INFORMATION
  Report Type: 
  Country: None (occurrence: None)
  Receive Date: 20060228
  Receipt Date: 20050405
  Transmission Date: 20060701
  Serious: No
  Sender: FDA-Public Use
  Company Number: US-GLAXOSMITHKLINE-A0552851A

PATIENT
  Age: 35 Year
  Sex: Female

DRUGS (4)
  1. LAMICTAL [Suspect]
     Indication: BIPOLAR DISORDER
     Route: 048
  2. PAXIL CR [Suspect]
     Dosage: 25MG PER DAY
     Route: 048
  3. XANAX [Concomitant]
  4. SEROQUEL [Concomitant]

REACTIONS (5)
  - HEADACHE [None]
  - IRRITABILITY [None]
  - PRURITUS GENERALISED [None]
  - PYREXIA [None]
  - RASH [None]
